FAERS Safety Report 23504971 (Version 1)
Quarter: 2024Q1

REPORT INFORMATION
  Report Type: Spontaneous
  Country: GB (occurrence: GB)
  Receive Date: 20240209
  Receipt Date: 20240209
  Transmission Date: 20240409
  Serious: No
  Sender: FDA-Public Use
  Company Number: None

PATIENT
  Age: 60 Year
  Sex: Female
  Weight: 61 kg

DRUGS (10)
  1. GABAPENTIN [Suspect]
     Active Substance: GABAPENTIN
     Indication: Ill-defined disorder
     Dosage: UNK
     Route: 065
     Dates: start: 20230515
  2. CEPHALEXIN [Concomitant]
     Active Substance: CEPHALEXIN
     Indication: Ill-defined disorder
     Dosage: UNK, ONE TO BE TAKEN TWO TIMES DAILY FOR 7 DAYS, TO ...
     Route: 065
     Dates: start: 20230307, end: 20230314
  3. GABAPENTIN [Concomitant]
     Active Substance: GABAPENTIN
     Indication: Ill-defined disorder
     Dosage: UNK, 300MG OM ADN 200MG EVENING
     Route: 065
     Dates: start: 20230329
  4. MIRABEGRON [Concomitant]
     Active Substance: MIRABEGRON
     Indication: Ill-defined disorder
     Dosage: 1 DOSAGE FORM, OD, ONE TABLET TO BE TAKEN ONCE A DAY FOR URINARY F...
     Route: 065
     Dates: start: 20230224
  5. MIRTAZAPINE [Concomitant]
     Active Substance: MIRTAZAPINE
     Indication: Ill-defined disorder
     Dosage: HALF A TABLET TO BE TAKEN AT NIGHT
     Route: 065
     Dates: start: 20220803
  6. FOSFOMYCIN TROMETHAMINE [Concomitant]
     Active Substance: FOSFOMYCIN TROMETHAMINE
     Indication: Ill-defined disorder
     Dosage: 1 DOSAGE FORM, TAKE ONE DOSE EVERY 48 TO 72 HOURS FOR A TOTAL
     Route: 065
     Dates: start: 20230403, end: 20230403
  7. NITROFURANTOIN [Concomitant]
     Active Substance: NITROFURANTOIN
     Indication: Ill-defined disorder
     Dosage: 1 DOSAGE FORM ONE TABLET TO BE TAKEN ONCE A DAY AT NIGHT
     Route: 065
     Dates: start: 20220803
  8. OMEPRAZOLE [Concomitant]
     Active Substance: OMEPRAZOLE
     Indication: Ill-defined disorder
     Dosage: 1 DOSAGE FORM, OD, ONE CAPSULE TO BE TAKEN ONCE A DAY TO REDUCE ST...
     Route: 065
     Dates: start: 20230224
  9. PREGABALIN [Concomitant]
     Active Substance: PREGABALIN
     Indication: Ill-defined disorder
     Dosage: 1 DOSAGE FORM, OD, ONE CAPSULE TO BE TAKEN ONCE A DAY
     Route: 065
     Dates: start: 20221207
  10. ZOPICLONE [Concomitant]
     Active Substance: ZOPICLONE
     Indication: Ill-defined disorder
     Dosage: UNK, HS, ONE AT NIGHT OCCASIONALLY - DO NOT ISSUE ANY M...
     Route: 065
     Dates: start: 20220803

REACTIONS (1)
  - Adverse drug reaction [Recovered/Resolved]

NARRATIVE: CASE EVENT DATE: 20230516
